FAERS Safety Report 5491331-5 (Version None)
Quarter: 2007Q4

REPORT INFORMATION
  Report Type: 
  Country: None (occurrence: None)
  Receive Date: 20071017
  Receipt Date: 20071009
  Transmission Date: 20080405
  Serious: Yes (Death)
  Sender: FDA-Public Use
  Company Number: 19151

PATIENT
  Age: 30 Year
  Sex: Male

DRUGS (4)
  1. PROPAFENONE HCL [Suspect]
     Indication: ATRIAL FIBRILLATION
     Dosage: 300 MG;BID;PO; 300 MG;TID;PO
     Route: 048
     Dates: start: 20070601, end: 20070601
  2. PROPAFENONE HCL [Suspect]
     Indication: ATRIAL FIBRILLATION
     Dosage: 300 MG;BID;PO; 300 MG;TID;PO
     Route: 048
     Dates: start: 20070601, end: 20070601
  3. ATENOLOL [Concomitant]
  4. UNKNOWN ANTICOAGULANT [Concomitant]

REACTIONS (3)
  - FALL [None]
  - GASTRIC DISORDER [None]
  - SUDDEN DEATH [None]
